FAERS Safety Report 5488874-7 (Version None)
Quarter: 2007Q4

REPORT INFORMATION
  Report Type: 
  Country: None (occurrence: None)
  Receive Date: 20071016
  Receipt Date: 20071003
  Transmission Date: 20080405
  Serious: Yes (Hospitalization)
  Sender: FDA-Public Use
  Company Number: CERZ-11907

PATIENT
  Age: 47 Year
  Sex: Female
  Weight: 58.2 kg

DRUGS (3)
  1. CEREZYME [Suspect]
     Indication: GAUCHER'S DISEASE
     Dosage: 60 U/KG IV
     Route: 042
  2. FOSAMAX. MFR: MERCK SHARP + DOME [Concomitant]
  3. CELECOXIB [Concomitant]

REACTIONS (4)
  - ANXIETY [None]
  - ARTHRALGIA [None]
  - BONE PAIN [None]
  - MUSCLE SPASMS [None]
